FAERS Safety Report 5748552-3 (Version None)
Quarter: 2008Q2

REPORT INFORMATION
  Report Type: 
  Country: None (occurrence: None)
  Receive Date: 20080521
  Receipt Date: 20080512
  Transmission Date: 20081010
  Serious: Yes (Hospitalization, Other)
  Sender: FDA-Public Use
  Company Number: 2008AP001169

PATIENT
  Age: 54 Year
  Sex: Male

DRUGS (5)
  1. LISINOPRIL [Suspect]
     Indication: HYPERTENSION
     Dosage: 20 MG QD
  2. AMLODIPINE [Concomitant]
  3. SPIRONOLACTONE [Concomitant]
  4. LACTULOSE [Concomitant]
  5. FUROSEMIDE [Concomitant]

REACTIONS (9)
  - ANAPHYLACTIC SHOCK [None]
  - CHOLESTASIS [None]
  - CONDITION AGGRAVATED [None]
  - HEPATIC ENCEPHALOPATHY [None]
  - HEPATIC FUNCTION ABNORMAL [None]
  - HYPOTENSION [None]
  - LIVER TRANSPLANT [None]
  - PORTAL VEIN THROMBOSIS [None]
  - TRANSFUSION REACTION [None]
